FAERS Safety Report 8076276-9 (Version None)
Quarter: 2012Q1

REPORT INFORMATION
  Report Type: 
  Country: None (occurrence: None)
  Receive Date: 20120127
  Receipt Date: 20120123
  Transmission Date: 20120608
  Serious: Yes (Hospitalization)
  Sender: FDA-Public Use
  Company Number: US-PFIZER INC-2009162010

PATIENT
  Sex: Male
  Weight: 90.5 kg

DRUGS (14)
  1. PREDNISONE [Suspect]
     Indication: PROSTATE CANCER
     Dosage: 5 MG, 2X/DAY
     Route: 048
     Dates: start: 20080909
  2. SIMVASTATIN [Concomitant]
     Indication: HYPERCHOLESTEROLAEMIA
     Dosage: UNK
  3. GLIPIZIDE [Concomitant]
     Indication: TYPE 2 DIABETES MELLITUS
     Dosage: UNK
  4. ACETYLSALICYLIC ACID [Concomitant]
     Indication: HYPERTENSION
     Dosage: UNK
  5. FEXOFENADINE [Concomitant]
     Indication: LACRIMATION INCREASED
     Dosage: UNK
     Dates: end: 20090105
  6. CALCIUM CARBONATE/MAGNESIUM HYDROXIDE [Concomitant]
     Indication: ROUTINE HEALTH MAINTENANCE
     Dosage: UNK
  7. LUPRON [Concomitant]
     Indication: PROSTATE CANCER
     Dosage: UNK
  8. ACTOS [Concomitant]
     Indication: TYPE 2 DIABETES MELLITUS
     Dosage: UNK
  9. AMLODIPINE [Concomitant]
     Indication: HYPERTENSION
     Dosage: UNK
  10. VITAMIN B-12 [Concomitant]
     Indication: ROUTINE HEALTH MAINTENANCE
     Dosage: UNK
  11. LOVAZA [Concomitant]
     Indication: ROUTINE HEALTH MAINTENANCE
     Dosage: UNK
  12. ARANESP [Concomitant]
     Indication: ANAEMIA
     Dosage: UNK
     Dates: start: 20080520
  13. SUNITINIB MALATE [Suspect]
     Indication: PROSTATE CANCER
     Dosage: 12.5 MG, 1X/DAY
     Route: 048
     Dates: start: 20080909, end: 20090105
  14. OMEPRAZOLE [Concomitant]
     Indication: GASTROOESOPHAGEAL REFLUX DISEASE
     Dosage: UNK

REACTIONS (6)
  - DYSPNOEA [None]
  - OEDEMA PERIPHERAL [None]
  - HAEMOPTYSIS [None]
  - PLEURAL EFFUSION [None]
  - CARDIAC FAILURE CONGESTIVE [None]
  - HYPOCALCAEMIA [None]
